FAERS Safety Report 4351117-1 (Version None)
Quarter: 2004Q2

REPORT INFORMATION
  Report Type: 
  Country: None (occurrence: None)
  Receive Date: 20040427
  Receipt Date: 20040414
  Transmission Date: 20050107
  Serious: Yes (Hospitalization, Other)
  Sender: FDA-Public Use
  Company Number: S04-FRA-01794-01

PATIENT
  Age: 58 Year
  Sex: Male

DRUGS (1)
  1. SEROPRAM (CITALOPRAM HYDROBROMIDE) [Suspect]
     Dosage: 20 MG TID PO
     Route: 048

REACTIONS (3)
  - EPILEPSY [None]
  - FALL [None]
  - LUMBAR VERTEBRAL FRACTURE [None]
